FAERS Safety Report 5052068-X (Version None)
Quarter: 2006Q3

REPORT INFORMATION
  Report Type: 
  Country: None (occurrence: None)
  Receive Date: 20060711
  Receipt Date: 20060630
  Transmission Date: 20061208
  Serious: Yes (Death)
  Sender: FDA-Public Use
  Company Number: E2020-00066-SPO-JP

PATIENT
  Age: 84 Year
  Sex: Male
  Weight: 46 kg

DRUGS (4)
  1. ARICEPT [Suspect]
     Indication: DEMENTIA ALZHEIMER'S TYPE
     Dosage: SEE IMAGE
     Route: 048
     Dates: start: 20060511, end: 20060517
  2. ARICEPT [Suspect]
     Indication: DEMENTIA ALZHEIMER'S TYPE
     Dosage: SEE IMAGE
     Route: 048
     Dates: start: 20060518, end: 20060518
  3. GASMOTIN (MOSAPRIDE CITRATE) [Concomitant]
  4. URSO 250 [Concomitant]

REACTIONS (5)
  - BLOOD PRESSURE INCREASED [None]
  - CEREBELLAR HAEMORRHAGE [None]
  - DYSSTASIA [None]
  - MEMORY IMPAIRMENT [None]
  - VOMITING [None]
